FAERS Safety Report 8620733-0 (Version None)
Quarter: 2012Q3

REPORT INFORMATION
  Report Type: 
  Country: None (occurrence: None)
  Receive Date: 20120824
  Receipt Date: 20120821
  Transmission Date: 20120928
  Serious: Yes (Life-Threatening, Other)
  Sender: FDA-Public Use
  Company Number: US-US-EMD SERONO, INC.-7133563

PATIENT
  Sex: Female

DRUGS (3)
  1. REBIF [Suspect]
     Indication: MULTIPLE SCLEROSIS
     Route: 058
     Dates: start: 20111215
  2. COPAXONE [Concomitant]
     Indication: MULTIPLE SCLEROSIS
     Dates: start: 20120502
  3. STEROIDS [Concomitant]
     Indication: PRODUCT USED FOR UNKNOWN INDICATION

REACTIONS (11)
  - CONVULSION [None]
  - HEADACHE [None]
  - HYPOAESTHESIA [None]
  - HEMIPARESIS [None]
  - MULTIPLE SCLEROSIS [None]
  - FALL [None]
  - AIR EMBOLISM [None]
  - OPTIC NEURITIS [None]
  - INSOMNIA [None]
  - MUSCLE SPASTICITY [None]
  - INJECTION SITE HAEMATOMA [None]
